FAERS Safety Report 4903617-0 (Version None)
Quarter: 2006Q1

REPORT INFORMATION
  Report Type: 
  Country: None (occurrence: None)
  Receive Date: 20060203
  Receipt Date: 20060120
  Transmission Date: 20060701
  Serious: Yes (Other)
  Sender: FDA-Public Use
  Company Number: 221336

PATIENT
  Age: 30 Year
  Sex: Male

DRUGS (1)
  1. RAPTIVA [Suspect]
     Indication: PSORIASIS
     Dosage: 0.7 ML, 1/WEEK,  SUBCUTANEOUS
     Route: 058
     Dates: start: 20051201, end: 20060101

REACTIONS (7)
  - ARTHRALGIA [None]
  - CHOLINERGIC SYNDROME [None]
  - DERMATITIS EXFOLIATIVE [None]
  - DRY MOUTH [None]
  - DYSURIA [None]
  - SJOGREN'S SYNDROME [None]
  - XEROPHTHALMIA [None]
